FAERS Safety Report 9224260 (Version 1)
Quarter: 2013Q1

REPORT INFORMATION
  Report Type: Spontaneous
  Country: US (occurrence: None)
  Receive Date: 20120914
  Receipt Date: 20120914
  Transmission Date: 20140127
  Serious: Yes (Other)
  Sender: FDA-Public Use
  Company Number: JPI-P-020690

PATIENT
  Age: 17 Year
  Sex: Female
  Weight: 66.23 kg

DRUGS (3)
  1. XYREM (500 MILLIGRAM/MILLILITERS, SOLUTION) (SODIUM OXYBATE) [Suspect]
     Indication: NARCOLEPSY
     Route: 048
     Dates: start: 20110927
  2. ARMODAFINIL [Concomitant]
  3. MEDROXYPROGESTERONE [Concomitant]

REACTIONS (1)
  - Weight decreased [None]
